FAERS Safety Report 22244801 (Version 1)
Quarter: 2023Q2

REPORT INFORMATION
  Report Type: Report from Study
  Country: IN (occurrence: IN)
  Receive Date: 20230424
  Receipt Date: 20230424
  Transmission Date: 20230722
  Serious: Yes (Death)
  Sender: FDA-Public Use
  Company Number: IN-MYLANLABS-2023M1042985

PATIENT
  Age: 11 Year
  Sex: Male

DRUGS (3)
  1. CISPLATIN [Suspect]
     Active Substance: CISPLATIN
     Indication: Medulloblastoma
     Dosage: 75 MILLIGRAM/SQ. METER EVERY 4 WEEKS, SCHEDULED TO RECEIVE CYCLICAL TREATMENT ON DAY?.
     Route: 042
  2. CYCLOPHOSPHAMIDE [Suspect]
     Active Substance: CYCLOPHOSPHAMIDE
     Indication: Medulloblastoma
     Dosage: 1000 MILLIGRAM/SQ. METER EVERY 4 WEEKS, SCHEDULED TO RECEIVE CYCLICAL TREATMENT ON DAYS?.
     Route: 042
  3. VINCRISTINE [Suspect]
     Active Substance: VINCRISTINE
     Indication: Medulloblastoma
     Dosage: 1.5 MILLIGRAM/SQ. METER EVERY 4 WEEKS, SCHEDULED TO RECEIVE CYCLICAL TREATMENT ON...
     Route: 042

REACTIONS (3)
  - Toxicity to various agents [Fatal]
  - Neutropenic sepsis [Fatal]
  - Multiple organ dysfunction syndrome [Fatal]
